FAERS Safety Report 19719790 (Version 3)
Quarter: 2024Q1

REPORT INFORMATION
  Report Type: Spontaneous
  Country: FR (occurrence: FR)
  Receive Date: 20210818
  Receipt Date: 20240319
  Transmission Date: 20240410
  Serious: Yes (Hospitalization, Other)
  Sender: FDA-Public Use
  Company Number: None

PATIENT
  Age: 70 Year
  Sex: Male
  Weight: 125 kg

DRUGS (10)
  1. FUROSEMIDE [Suspect]
     Active Substance: FUROSEMIDE
     Indication: Hypertension
     Dosage: 125 MILLIGRAM, QD
     Route: 048
     Dates: end: 20210216
  2. FOLIC ACID [Suspect]
     Active Substance: FOLIC ACID
     Indication: Folate deficiency
     Dosage: 10 MILLIGRAM, QD
     Route: 048
     Dates: start: 20210213, end: 20210216
  3. FOLIC ACID [Suspect]
     Active Substance: FOLIC ACID
     Dosage: 10 MILLIGRAM, QD
     Route: 065
     Dates: start: 20230216
  4. FUSIDIC ACID [Suspect]
     Active Substance: FUSIDIC ACID
     Indication: Folate deficiency
     Dosage: 4 DOSAGE FORM, QD
     Route: 065
     Dates: end: 20210216
  5. TAMSULOSIN [Suspect]
     Active Substance: TAMSULOSIN
     Indication: Hypokalaemia
     Dosage: 6 DOSAGE FORM, QD
     Route: 048
     Dates: end: 20210216
  6. AMBROXOL [Suspect]
     Active Substance: AMBROXOL
     Indication: Gout
     Dosage: 1 DOSAGE FORM, QD
     Route: 048
     Dates: end: 20210216
  7. FEBUXOSTAT [Suspect]
     Active Substance: FEBUXOSTAT
     Indication: Gout
     Dosage: UNK
     Route: 048
     Dates: end: 20210216
  8. POTASSIUM CHLORIDE [Suspect]
     Active Substance: POTASSIUM CHLORIDE
     Indication: Hypokalaemia
     Dosage: 6 DOSAGE FORM, QD
     Route: 048
     Dates: start: 20210213, end: 20210216
  9. IOMERON [Suspect]
     Active Substance: IOMEPROL
     Indication: Computerised tomogram abdomen
     Dosage: 120 MILLILITER, TOTAL
     Route: 054
     Dates: start: 20210214, end: 20210214
  10. FEBUXOSTAT [Suspect]
     Active Substance: FEBUXOSTAT
     Indication: Gout
     Dosage: 1 DOSAGE FORM, QD
     Route: 048
     Dates: end: 20210216

REACTIONS (5)
  - Acute kidney injury [Recovering/Resolving]
  - Drug abuse [Unknown]
  - Overdose [Unknown]
  - Intentional product misuse [Unknown]
  - Medication error [Unknown]

NARRATIVE: CASE EVENT DATE: 20210215
